FAERS Safety Report 10153886 (Version 1)
Quarter: 2014Q2

REPORT INFORMATION
  Report Type: Report from Study
  Country: US (occurrence: US)
  Receive Date: 20140506
  Receipt Date: 20140506
  Transmission Date: 20141212
  Serious: Yes (Other)
  Sender: FDA-Public Use
  Company Number: US-ROCHE-1394950

PATIENT
  Age: 15 Year
  Sex: Male
  Weight: 93.7 kg

DRUGS (3)
  1. NUTROPIN [Suspect]
     Indication: GROWTH HORMONE DEFICIENCY
     Route: 058
     Dates: start: 201304, end: 20140402
  2. NUTROPIN [Suspect]
     Route: 058
     Dates: start: 20140402
  3. CITRACAL [Concomitant]
     Route: 048

REACTIONS (4)
  - Insulin-like growth factor increased [Unknown]
  - Weight increased [Unknown]
  - Blood alkaline phosphatase increased [Unknown]
  - Adipomastia [Unknown]
